FAERS Safety Report 6978471-6 (Version None)
Quarter: 2010Q3

REPORT INFORMATION
  Report Type: 
  Country: None (occurrence: None)
  Receive Date: 20100913
  Receipt Date: 20100901
  Transmission Date: 20110219
  Serious: Yes (Other)
  Sender: FDA-Public Use
  Company Number: SE-PFIZER INC-2010110526

PATIENT
  Age: 36 Year
  Sex: Male

DRUGS (2)
  1. LYRICA [Suspect]
     Indication: NEURALGIA
     Dosage: MUCH MORE OVER 600 MG DAILY
     Dates: start: 20080529
  2. ZOLOFT [Concomitant]
     Indication: POST-TRAUMATIC STRESS DISORDER
     Dosage: UNK

REACTIONS (5)
  - ABNORMAL BEHAVIOUR [None]
  - ATAXIA [None]
  - DRUG ABUSE [None]
  - FATIGUE [None]
  - POOR PERSONAL HYGIENE [None]
